FAERS Safety Report 11050963 (Version 1)
Quarter: 2015Q2

REPORT INFORMATION
  Report Type: Spontaneous
  Country: US (occurrence: None)
  Receive Date: 20150420
  Receipt Date: 20150420
  Transmission Date: 20150821
  Serious: Yes (Life-Threatening, Hospitalization, Disabling, Other)
  Sender: FDA-Public Use
  Company Number: None

PATIENT
  Age: 9 Month
  Sex: Male
  Weight: 77.11 kg

DRUGS (11)
  1. FLOURENTINE [Concomitant]
  2. CLANPEM [Concomitant]
  3. ABILIFY [Concomitant]
     Active Substance: ARIPIPRAZOLE
  4. DAPOKOTE [Concomitant]
  5. MAGNISM [Concomitant]
  6. ZYPREXA [Concomitant]
     Active Substance: OLANZAPINE
  7. ZITHROMAX [Suspect]
     Active Substance: AZITHROMYCIN DIHYDRATE
     Indication: CHLAMYDIAL INFECTION
     Dosage: 2-500MG, INTO THE MUSCLE
     Route: 030
     Dates: start: 20150207, end: 20150212
  8. ATAVAN [Concomitant]
  9. TYNOLD [Concomitant]
  10. ZITHROMAX [Suspect]
     Active Substance: AZITHROMYCIN DIHYDRATE
     Indication: BLOOD URINE PRESENT
     Dosage: 2-500MG, INTO THE MUSCLE
     Route: 030
     Dates: start: 20150207, end: 20150212
  11. LAMINCAL [Concomitant]

REACTIONS (13)
  - Headache [None]
  - Insomnia [None]
  - Gait disturbance [None]
  - Respiratory arrest [None]
  - Suicidal ideation [None]
  - Dysstasia [None]
  - Dizziness [None]
  - Feeling cold [None]
  - Foaming at mouth [None]
  - Musculoskeletal stiffness [None]
  - Abnormal behaviour [None]
  - Anger [None]
  - Cyanosis [None]

NARRATIVE: CASE EVENT DATE: 20150207
